FAERS Safety Report 5855705-2 (Version None)
Quarter: 2008Q3

REPORT INFORMATION
  Report Type: 
  Country: None (occurrence: None)
  Receive Date: 20080825
  Receipt Date: 20080812
  Transmission Date: 20090109
  Serious: Yes (Death, Other)
  Sender: FDA-Public Use
  Company Number: GB-RANBAXY-2008RR-17343

PATIENT

DRUGS (5)
  1. ACYCLOVIR [Suspect]
     Indication: HERPES VIRUS INFECTION
     Route: 065
  2. HEPATITIS B VIRUS [Suspect]
     Indication: HEPATITIS B IMMUNISATION
     Route: 065
  3. LAMIVUDINE [Suspect]
     Indication: HUMAN IMMUNODEFICIENCY VIRUS TRANSMISSION
     Route: 065
  4. VIRAMUNE [Suspect]
     Indication: HUMAN IMMUNODEFICIENCY VIRUS TRANSMISSION
     Route: 065
  5. ZIDOVUDINE [Suspect]
     Indication: HUMAN IMMUNODEFICIENCY VIRUS TRANSMISSION
     Route: 065

REACTIONS (7)
  - ACIDOSIS [None]
  - CONGENITAL HERPES SIMPLEX INFECTION [None]
  - CONVULSION [None]
  - DISSEMINATED INTRAVASCULAR COAGULATION [None]
  - LIVER FUNCTION TEST ABNORMAL [None]
  - MALAISE [None]
  - PYREXIA [None]
